FAERS Safety Report 10072645 (Version 1)
Quarter: 2014Q2

REPORT INFORMATION
  Report Type: Spontaneous
  Country: IN (occurrence: None)
  Receive Date: 20140409
  Receipt Date: 20140409
  Transmission Date: 20141212
  Serious: Yes (Life-Threatening, Hospitalization)
  Sender: FDA-Public Use
  Company Number: IN-AIKEM-000544

PATIENT
  Age: 11 Month
  Sex: Male
  Weight: 6 kg

DRUGS (1)
  1. AMLODIPINE [Suspect]
     Route: 048

REACTIONS (16)
  - Drug dispensing error [None]
  - Overdose [None]
  - Toxicity to various agents [None]
  - Hyperglycaemia [None]
  - Shock [None]
  - Renal failure [None]
  - Cardiac failure congestive [None]
  - Hepatomegaly [None]
  - Metabolic acidosis [None]
  - Respiratory distress [None]
  - Anaemia [None]
  - Hepatic enzyme increased [None]
  - Vomiting [None]
  - Lethargy [None]
  - Loss of consciousness [None]
  - Crepitations [None]
